FAERS Safety Report 5793476-9 (Version None)
Quarter: 2008Q2

REPORT INFORMATION
  Report Type: 
  Country: None (occurrence: None)
  Receive Date: 20080627
  Receipt Date: 20080618
  Transmission Date: 20081010
  Serious: Yes (Hospitalization, Other)
  Sender: FDA-Public Use
  Company Number: US-JNJFOC-20080604702

PATIENT
  Sex: Female
  Weight: 63.5 kg

DRUGS (4)
  1. CONCERTA [Suspect]
     Indication: ATTENTION DEFICIT/HYPERACTIVITY DISORDER
     Route: 048
  2. ALBUTEROL [Concomitant]
     Indication: SEASONAL ALLERGY
  3. ALBUTEROL [Concomitant]
     Indication: ASTHMA
  4. AIRBOOME [Concomitant]
     Indication: NASOPHARYNGITIS

REACTIONS (7)
  - BRADYCARDIA [None]
  - DIZZINESS [None]
  - HOSPITALISATION [None]
  - LOSS OF CONSCIOUSNESS [None]
  - NASOPHARYNGITIS [None]
  - SINUS ARRHYTHMIA [None]
  - WHEEZING [None]
